FAERS Safety Report 13094323 (Version 2)
Quarter: 2017Q1

REPORT INFORMATION
  Report Type: Spontaneous
  Country: US (occurrence: US)
  Receive Date: 20170106
  Receipt Date: 20170208
  Transmission Date: 20170428
  Serious: No
  Sender: FDA-Public Use
  Company Number: US-PFIZER INC-2017004101

PATIENT
  Age: 16 Year
  Sex: Male

DRUGS (1)
  1. PRISTIQ EXTENDED-RELEASE [Suspect]
     Active Substance: DESVENLAFAXINE SUCCINATE
     Indication: DEPRESSION
     Dosage: 25 MG, 1X/DAY (CHANGED FROM TAKING IN AM TO PM)
     Route: 048
     Dates: start: 20161129

REACTIONS (3)
  - Nausea [Recovering/Resolving]
  - Product use issue [Unknown]
  - Pallor [Unknown]

NARRATIVE: CASE EVENT DATE: 20161129
